FAERS Safety Report 5716213-2 (Version None)
Quarter: 2008Q2

REPORT INFORMATION
  Report Type: 
  Country: None (occurrence: None)
  Receive Date: 20080422
  Receipt Date: 20080411
  Transmission Date: 20081010
  Serious: Yes (Life-Threatening)
  Sender: FDA-Public Use
  Company Number: GXKR2008GB03549

PATIENT
  Age: 72 Year
  Sex: Male
  Weight: 81.6 kg

DRUGS (10)
  1. VERAPAMIL [Suspect]
     Indication: ATRIAL FIBRILLATION
     Dosage: 160 MG, QD, ORAL
     Route: 048
     Dates: start: 20080328, end: 20080331
  2. ACETYLSALICYLIC ACID SRT [Concomitant]
  3. DIGOXIN [Concomitant]
  4. ENOXAPARIN SODIUM [Concomitant]
  5. FELODIPINE [Concomitant]
  6. FUROSEMIDE [Concomitant]
  7. HUMULIN M3 (INSULIN HUMAN) [Concomitant]
  8. ACETAMINOPHEN [Concomitant]
  9. SIMVASTATIN [Concomitant]
  10. TAMSULOSIN HCL [Concomitant]

REACTIONS (1)
  - ANGIOEDEMA [None]
